FAERS Safety Report 5806890-X (Version None)
Quarter: 2008Q3

REPORT INFORMATION
  Report Type: 
  Country: None (occurrence: None)
  Receive Date: 20080711
  Receipt Date: 20080702
  Transmission Date: 20090109
  Serious: Yes (Other)
  Sender: FDA-Public Use
  Company Number: US-ROCHE-573636

PATIENT
  Age: 66 Year
  Sex: Female

DRUGS (3)
  1. BONIVA [Suspect]
     Indication: OSTEOPOROSIS
     Route: 048
     Dates: start: 20080401
  2. 1 CONCOMITANT DRUG [Concomitant]
     Dosage: DRUG REPORTED AS: BLOOD PRESSURE MEDICATION
  3. 1 CONCOMITANT DRUG [Concomitant]
     Dosage: DRUG REPORTED AS: THYROID MEDICATION

REACTIONS (2)
  - ADRENOMEGALY [None]
  - STOMACH DISCOMFORT [None]
